FAERS Safety Report 8177560-0 (Version None)
Quarter: 2012Q1

REPORT INFORMATION
  Report Type: 
  Country: None (occurrence: None)
  Receive Date: 20120301
  Receipt Date: 20120221
  Transmission Date: 20120608
  Serious: Yes (Other)
  Sender: FDA-Public Use
  Company Number: GB-JNJFOC-20120212363

PATIENT

DRUGS (2)
  1. INFLIXIMAB, RECOMBINANT [Suspect]
     Indication: CROHN'S DISEASE
     Route: 042
  2. INFLIXIMAB, RECOMBINANT [Suspect]
     Route: 042

REACTIONS (12)
  - INFECTION [None]
  - HERPES ZOSTER [None]
  - DRUG INEFFECTIVE [None]
  - HYPOTENSION [None]
  - ADVERSE EVENT [None]
  - DYSPNOEA [None]
  - INTESTINAL RESECTION [None]
  - HYPERSENSITIVITY [None]
  - INFUSION RELATED REACTION [None]
  - WHEEZING [None]
  - RASH MACULO-PAPULAR [None]
  - HEADACHE [None]
